FAERS Safety Report 14114464 (Version 1)
Quarter: 2017Q4

REPORT INFORMATION
  Report Type: Spontaneous
  Country: US (occurrence: US)
  Receive Date: 20171023
  Receipt Date: 20171023
  Transmission Date: 20180321
  Serious: Yes (Other)
  Sender: FDA-Public Use
  Company Number: None

PATIENT
  Age: 36 Year
  Sex: Female
  Weight: 139.05 kg

DRUGS (5)
  1. OMEPRAZOLE. [Concomitant]
     Active Substance: OMEPRAZOLE
  2. GABAPENTIN. [Concomitant]
     Active Substance: GABAPENTIN
  3. PIOGLITAZONE. [Concomitant]
     Active Substance: PIOGLITAZONE
  4. SUMATRIPTAN. [Suspect]
     Active Substance: SUMATRIPTAN
     Indication: MIGRAINE
     Route: 045
     Dates: start: 20171022, end: 20171022
  5. GLIPIZIDE ER [Concomitant]
     Active Substance: GLIPIZIDE

REACTIONS (3)
  - Dysgeusia [None]
  - Nasal discomfort [None]
  - Amnesia [None]

NARRATIVE: CASE EVENT DATE: 20171022
